FAERS Safety Report 8315267-7 (Version None)
Quarter: 2012Q2

REPORT INFORMATION
  Report Type: 
  Country: None (occurrence: None)
  Receive Date: 20120426
  Receipt Date: 20120419
  Transmission Date: 20120825
  Serious: Yes (Disabling)
  Sender: FDA-Public Use
  Company Number: PHHO2012GB006201

PATIENT
  Sex: Female
  Weight: 18.6 kg

DRUGS (2)
  1. DEXAMETHASONE [Suspect]
     Dosage: UNK
     Route: 048
     Dates: start: 20101024
  2. IMATINIB MESYLATE [Suspect]
     Indication: ACUTE LYMPHOCYTIC LEUKAEMIA
     Dosage: 150 MG, UNK
     Route: 048
     Dates: start: 20101109

REACTIONS (1)
  - STRESS FRACTURE [None]
